FAERS Safety Report 9494135 (Version 5)
Quarter: 2014Q2

REPORT INFORMATION
  Report Type: Spontaneous
  Country: US (occurrence: None)
  Receive Date: 20130828
  Receipt Date: 20140411
  Transmission Date: 20141212
  Serious: Yes (Death)
  Sender: FDA-Public Use
  Company Number: 2013US002317

PATIENT
  Age: 73 Year
  Sex: Female
  Weight: 76 kg

DRUGS (12)
  1. ICLUSIG [Suspect]
     Indication: ACUTE LYMPHOCYTIC LEUKAEMIA
     Route: 048
     Dates: start: 20130713, end: 20130718
  2. PANTOPRAZOLE (PANTOPRAZOLE) [Concomitant]
  3. TOPROL XL (METOPROLOL SUCCINATE) [Concomitant]
  4. PROCHLORPERAZINE MALEATE (PROCHIORPERAZINE MALEATE) [Concomitant]
  5. CIPROFLOXACIN (CIPROFLOXACIN) [Concomitant]
  6. TEMAZEPAM (TEMAZEPAM) [Concomitant]
  7. HYDROCODONE W/APAP (HYDROCODONE W/APAP) [Concomitant]
  8. LORAZEPAM (LORAZEPAM) [Concomitant]
  9. HALOPERIDOL (HALOPERIDOL) [Concomitant]
  10. ROXANOL (MORPHINE SULFATE) [Concomitant]
  11. MORPHINE (MORPHINE) [Concomitant]
  12. LIDOCAINE (LIDOCAINE) [Concomitant]

REACTIONS (4)
  - Terminal state [None]
  - Hospice care [None]
  - Acute lymphocytic leukaemia recurrent [None]
  - Malignant neoplasm progression [None]
